FAERS Safety Report 7229611-5 (Version None)
Quarter: 2011Q1

REPORT INFORMATION
  Report Type: 
  Country: None (occurrence: None)
  Receive Date: 20110117
  Receipt Date: 20110111
  Transmission Date: 20110831
  Serious: Yes (Hospitalization)
  Sender: FDA-Public Use
  Company Number: DE-JNJFOC-20100807891

PATIENT
  Sex: Male

DRUGS (11)
  1. SPIRIVA [Concomitant]
     Route: 065
  2. UNKNOWN MEDICATION [Concomitant]
     Route: 065
  3. DIPYRONE INJ [Concomitant]
     Route: 065
  4. LASIX [Concomitant]
     Route: 065
  5. MAGNESIUM [Concomitant]
     Route: 065
  6. MARCUMAR [Concomitant]
     Route: 065
  7. ALLOPURINOL [Concomitant]
     Route: 065
  8. DURAGESIC-100 [Suspect]
     Indication: PAIN
     Dosage: INITIATED APPROXIMATELY 4 YEARS AGO
     Route: 062
  9. ALDACTONE [Concomitant]
     Route: 065
  10. CONCOR [Concomitant]
     Route: 065
  11. UNKNOWN MEDICATION [Concomitant]
     Route: 065

REACTIONS (1)
  - PULMONARY HYPERTENSION [None]
